FAERS Safety Report 9866985 (Version 1)
Quarter: 2014Q1

REPORT INFORMATION
  Report Type: Spontaneous
  Country: US (occurrence: US)
  Receive Date: 20140204
  Receipt Date: 20140204
  Transmission Date: 20141002
  Serious: Yes (Other)
  Sender: FDA-Public Use
  Company Number: US-SUN PHARMACEUTICAL INDUSTRIES LTD-2014SUN00215

PATIENT
  Sex: Male
  Weight: 2.65 kg

DRUGS (13)
  1. QUETIAPINE FUMARATE 25MG TABLETS [Suspect]
     Indication: FOETAL EXPOSURE DURING PREGNANCY
     Dosage: RECEIVED BY MOTHER
     Route: 064
  2. QUETIAPINE FUMARATE 25MG TABLETS [Suspect]
     Dosage: RECEIVED BY MOTHER
     Route: 064
  3. PAROXETINE HYDROCHLORIDE 10 MG TABLET [Suspect]
     Indication: FOETAL EXPOSURE DURING PREGNANCY
     Dosage: RECEIVED BY MOTHER
     Route: 064
  4. PAROXETINE HYDROCHLORIDE 10 MG TABLET [Suspect]
     Dosage: RECEIVED BY MOTHER
     Route: 064
  5. CLONAZEPAM 0.5 MG TABLET [Suspect]
     Indication: FOETAL EXPOSURE DURING PREGNANCY
     Dosage: RECEIVED BY MOTHER
     Route: 064
  6. LAMOTRIGINE [Suspect]
     Dosage: RECEIVED BY MOTHER
     Route: 064
  7. FLUOXETINE [Suspect]
     Indication: FOETAL EXPOSURE DURING PREGNANCY
     Dosage: RECEIVED BY MOTHER
     Route: 064
  8. FLUOXETINE [Suspect]
     Dosage: RECEIVED BY MOTHER
     Route: 064
  9. GLYBURIDE [Concomitant]
     Indication: FOETAL EXPOSURE DURING PREGNANCY
     Dosage: RECEIVED BY MOTHER
     Route: 064
  10. LORAZEPAM [Concomitant]
     Indication: FOETAL EXPOSURE DURING PREGNANCY
     Dosage: RECEIVED BY MOTHER
     Route: 064
  11. LORAZEPAM [Concomitant]
     Dosage: RECEIVED BY MOTHER: 2 MG, UNK
     Route: 064
  12. HALOPERIDOL [Concomitant]
     Indication: FOETAL EXPOSURE DURING PREGNANCY
     Dosage: RECEIVED BY MOTHER: 5 MG, UNK
     Route: 064
  13. BENZTROPINE [Concomitant]
     Indication: FOETAL EXPOSURE DURING PREGNANCY
     Dosage: RECEIVED BY MOTHER: 1 MG
     Route: 064

REACTIONS (2)
  - Physical examination abnormal [Recovered/Resolved]
  - Foetal exposure during pregnancy [Recovered/Resolved]
